FAERS Safety Report 8904546 (Version 2)
Quarter: 2013Q1

REPORT INFORMATION
  Report Type: Spontaneous
  Country: US (occurrence: CH)
  Receive Date: 20121113
  Receipt Date: 20130115
  Transmission Date: 20140127
  Serious: Yes (Life-Threatening, Hospitalization, Other)
  Sender: FDA-Public Use
  Company Number: CH-009507513-1211CHE004067

PATIENT
  Age: 61 Year
  Sex: Male

DRUGS (14)
  1. VICTRELIS [Suspect]
     Indication: HEPATITIS C
     Dosage: 800 MG, TID
     Route: 048
     Dates: start: 20120723, end: 20120924
  2. PEGASYS [Suspect]
     Indication: HEPATITIS C
     Dosage: 180 MICROGRAM, QW
     Route: 058
     Dates: start: 20120625, end: 20120924
  3. COPEGUS [Suspect]
     Indication: HEPATITIS C
     Dosage: 1000 MG,QD
     Route: 048
     Dates: start: 20120625
  4. COPEGUS [Suspect]
     Dosage: 800 MG, QD
     Dates: start: 20120918, end: 20120924
  5. BRUFEN [Suspect]
     Indication: INFLUENZA LIKE ILLNESS
     Dosage: 600 MG, 3 TIMES DAILY, PRN
     Route: 048
     Dates: start: 20120903, end: 20120924
  6. COVERSUM COMBI [Concomitant]
     Indication: HYPERTENSION
     Dosage: 5/1.25 MG, QD
     Route: 048
     Dates: start: 2011, end: 20120924
  7. DEANXIT [Concomitant]
     Indication: DEPRESSION
     Dosage: 10/0.5, 2 UNITS
     Route: 048
     Dates: start: 2011, end: 20120924
  8. SEROQUEL [Concomitant]
     Indication: RESTLESSNESS
     Dosage: 25 MG, QD
     Route: 048
     Dates: start: 20120903, end: 20120924
  9. SEROQUEL [Concomitant]
     Indication: INSOMNIA
  10. MOTILIUM [Concomitant]
     Indication: NAUSEA
     Dosage: 10 MG, TID
     Route: 048
     Dates: start: 20120903, end: 20120924
  11. MOTILIUM [Concomitant]
     Indication: PROPHYLAXIS
  12. NEXIUM [Concomitant]
     Indication: NAUSEA
     Dosage: 40 MG, QD
     Route: 048
     Dates: start: 20120903, end: 20120924
  13. NEXIUM [Concomitant]
     Indication: PROPHYLAXIS
  14. CYANOCOBALAMIN [Concomitant]
     Indication: HEPATITIS C
     Dosage: 200 MICROGRAM, QM
     Route: 030
     Dates: start: 20120917

REACTIONS (3)
  - Pancytopenia [Recovered/Resolved]
  - Agranulocytosis [Recovered/Resolved with Sequelae]
  - Sepsis [Recovered/Resolved with Sequelae]
